FAERS Safety Report 11746726 (Version 1)
Quarter: 2015Q4

REPORT INFORMATION
  Report Type: Spontaneous
  Country: US (occurrence: None)
  Receive Date: 20151116
  Receipt Date: 20151116
  Transmission Date: 20160304
  Serious: Yes (Other)
  Sender: FDA-Public Use
  Company Number: None

PATIENT
  Age: 31 Year
  Sex: Male
  Weight: 131.09 kg

DRUGS (1)
  1. METHADONE [Suspect]
     Active Substance: METHADONE HYDROCHLORIDE
     Dosage: PINK LIQUID, ONCE DAILY, TAKEN BY MOUTH
     Route: 048

REACTIONS (2)
  - Dyspareunia [None]
  - Penile pain [None]

NARRATIVE: CASE EVENT DATE: 20151114
